FAERS Safety Report 7521937-0 (Version None)
Quarter: 2011Q2

REPORT INFORMATION
  Report Type: 
  Country: None (occurrence: None)
  Receive Date: 20110524
  Receipt Date: 20110518
  Transmission Date: 20111010
  Serious: Yes (Death)
  Sender: FDA-Public Use
  Company Number: 2011SP008214

PATIENT
  Age: 81 Year
  Sex: Female

DRUGS (10)
  1. LOXOPROFEN SODIUM HYDRATE [Concomitant]
  2. PITAVASTATIN CALCIUM [Concomitant]
  3. MAGNESIUM OXIDE [Concomitant]
  4. PROCHLORPERAZINE MALEATE [Concomitant]
  5. MIRTAZAPINE [Suspect]
     Indication: DEPRESSION
     Dosage: 15 MG; QD; PO
     Route: 048
     Dates: start: 20110117, end: 20110205
  6. WARFARIN SODIUM [Concomitant]
  7. FAMOTIDINE [Concomitant]
  8. NICORANDIL [Concomitant]
  9. ISOSORBIDE MONONITRATE [Concomitant]
  10. LANSOPRAZOLE [Concomitant]

REACTIONS (3)
  - GENERAL PHYSICAL HEALTH DETERIORATION [None]
  - SOMNOLENCE [None]
  - DEPRESSED LEVEL OF CONSCIOUSNESS [None]
